FAERS Safety Report 23062231 (Version 3)
Quarter: 2024Q1

REPORT INFORMATION
  Report Type: Report from Study
  Country: US (occurrence: US)
  Receive Date: 20231013
  Receipt Date: 20240201
  Transmission Date: 20240410
  Serious: No
  Sender: FDA-Public Use
  Company Number: US-002147023-NVSC2023US220953

PATIENT
  Sex: Female

DRUGS (2)
  1. KISQALI [Suspect]
     Active Substance: RIBOCICLIB
     Indication: Breast cancer metastatic
     Dosage: UNK, 21 DAYS ON 7 DAYS OFF
     Route: 048
  2. KISQALI [Suspect]
     Active Substance: RIBOCICLIB
     Indication: Breast cancer female

REACTIONS (5)
  - Hot flush [Unknown]
  - Nausea [Unknown]
  - Fatigue [Unknown]
  - Hepatic enzyme increased [Unknown]
  - Liver function test increased [Unknown]
